FAERS Safety Report 8913058 (Version 1)
Quarter: 2012Q4

REPORT INFORMATION
  Report Type: Spontaneous
  Country: US (occurrence: None)
  Receive Date: 20121113
  Receipt Date: 20121113
  Transmission Date: 20130627
  Serious: Yes (Other)
  Sender: FDA-Public Use
  Company Number: 2012P1061715

PATIENT

DRUGS (1)
  1. SANTYL OINTMENT (NO PREF. NAME) [Suspect]

REACTIONS (2)
  - Tendon disorder [None]
  - Angioplasty [None]
